FAERS Safety Report 4938619-1 (Version None)
Quarter: 2006Q1

REPORT INFORMATION
  Report Type: 
  Country: None (occurrence: None)
  Receive Date: 20060309
  Receipt Date: 20041203
  Transmission Date: 20060701
  Serious: Yes (Other)
  Sender: FDA-Public Use
  Company Number: JP-AVENTIS-200413889JP

PATIENT
  Age: 68 Year
  Sex: Male
  Weight: 60.4 kg

DRUGS (6)
  1. LANTUS [Suspect]
     Indication: DIABETES MELLITUS INSULIN-DEPENDENT
     Route: 058
     Dates: end: 20051003
  2. OPTIPEN (INSULIN PUMP) [Suspect]
  3. OPTICLIK (INSULIN INJECTION PEN) [Suspect]
  4. NOVORAPID [Concomitant]
     Indication: DIABETES MELLITUS INSULIN-DEPENDENT
     Dosage: DOSE: 10-8-10
     Route: 058
  5. NU-LOTAN [Concomitant]
     Indication: HYPERTENSION
     Route: 048
  6. PANALDINE [Concomitant]
     Indication: CEREBRAL INFARCTION
     Dosage: DOSE: 1 TABLET EACH
     Route: 048

REACTIONS (3)
  - DIABETIC RETINOPATHY [None]
  - DISEASE PROGRESSION [None]
  - LUNG NEOPLASM MALIGNANT [None]
